FAERS Safety Report 17960255 (Version 1)
Quarter: 2020Q2

REPORT INFORMATION
  Report Type: Spontaneous
  Country: US (occurrence: US)
  Receive Date: 20200629
  Receipt Date: 20200629
  Transmission Date: 20200714
  Serious: No
  Sender: FDA-Public Use
  Company Number: US-ASCEND THERAPEUTICS US, LLC-2086801

PATIENT
  Age: 51 Year
  Sex: Female

DRUGS (5)
  1. ESTROGEL [Suspect]
     Active Substance: ESTRADIOL
     Indication: HOT FLUSH
     Dates: start: 2018
  2. BOTOX [Concomitant]
     Active Substance: ONABOTULINUMTOXINA
  3. ESTROGEL [Suspect]
     Active Substance: ESTRADIOL
  4. ESTRADIOL. [Suspect]
     Active Substance: ESTRADIOL
     Dates: start: 2018
  5. PROGESTERONE. [Concomitant]
     Active Substance: PROGESTERONE

REACTIONS (1)
  - Product use in unapproved indication [None]
